FAERS Safety Report 8593889-6 (Version None)
Quarter: 2012Q3

REPORT INFORMATION
  Report Type: 
  Country: None (occurrence: None)
  Receive Date: 20120814
  Receipt Date: 20120813
  Transmission Date: 20120928
  Serious: Yes (Life-Threatening, Hospitalization)
  Sender: FDA-Public Use
  Company Number: FR-PFIZER INC-2012186360

PATIENT
  Age: 73 Year
  Sex: Female

DRUGS (10)
  1. ASPIRIN [Concomitant]
     Indication: PROPHYLAXIS
     Dosage: 160 MG PER DAY
     Route: 048
     Dates: end: 20120617
  2. CELEBREX [Suspect]
     Indication: PAIN
     Dosage: 200 MG PER DAY
     Route: 048
     Dates: end: 20120617
  3. ACETAMINOPHEN [Interacting]
     Indication: PAIN
     Dosage: 1 G, 4X/DAY
     Route: 048
     Dates: end: 20120617
  4. TRAMADOL HCL [Interacting]
     Indication: PAIN
     Dosage: 200 MG PER DAY IN THE EVENING
     Route: 048
     Dates: end: 20120617
  5. OXYBUTYNIN HYDROCHLORIDE [Concomitant]
     Indication: URINARY INCONTINENCE
     Dosage: 10 MG, 2X/DAY
     Route: 048
     Dates: end: 20120617
  6. SOTALOL HCL [Concomitant]
     Indication: ATRIAL FIBRILLATION
     Dosage: 40 MG, 2X/DAY
     Route: 048
     Dates: end: 20120617
  7. TRAMADOL HCL [Interacting]
     Dosage: 150 MG PER DAY IN THE MORNING
     Route: 048
     Dates: end: 20120617
  8. ACTONEL COMBI D [Concomitant]
     Indication: OSTEOPOROSIS POSTMENOPAUSAL
     Dosage: 35 MG + 1000 MG/880 IU, ONE DOSAGE FORM DAILY
     Dates: end: 20120617
  9. PRIMPERAN TAB [Concomitant]
     Indication: NAUSEA
     Dosage: 10 MG, 2X/DAY
     Dates: end: 20120617
  10. MOVIPREP [Concomitant]
     Indication: CONSTIPATION
     Dosage: 1 DOSAGE FORM DAILY
     Route: 048
     Dates: end: 20120617

REACTIONS (7)
  - CARDIOGENIC SHOCK [None]
  - COMA [None]
  - RENAL FAILURE ACUTE [None]
  - DRUG INTERACTION [None]
  - GRAND MAL CONVULSION [None]
  - HEPATOCELLULAR INJURY [None]
  - CARDIO-RESPIRATORY ARREST [None]
